FAERS Safety Report 4365439-1 (Version None)
Quarter: 2004Q2

REPORT INFORMATION
  Report Type: 
  Country: None (occurrence: None)
  Receive Date: 20040520
  Receipt Date: 20040507
  Transmission Date: 20050107
  Serious: Yes (Hospitalization)
  Sender: FDA-Public Use
  Company Number: 2004UW09432

PATIENT
  Age: 77 Year
  Sex: Female

DRUGS (10)
  1. ZESTRIL [Suspect]
     Dosage: 25 MG QD PO
     Route: 048
     Dates: start: 20031211, end: 20031231
  2. LEXAPRO [Suspect]
     Indication: DEPRESSION
     Dosage: 10 MG QD PO
     Route: 048
     Dates: start: 20031210, end: 20031213
  3. DIFLUCAN [Suspect]
     Dates: start: 20031216
  4. VENTOLIN [Suspect]
     Dosage: 8 PUFF DAILY
     Dates: start: 20031201, end: 20031211
  5. DOBUTREX [Concomitant]
  6. LOVENOX [Concomitant]
  7. LOPRESSOR [Concomitant]
  8. DARVOCET-N 100 [Concomitant]
  9. MORPHINE [Concomitant]
  10. PERCOCET [Concomitant]

REACTIONS (2)
  - ELECTROCARDIOGRAM QT PROLONGED [None]
  - VENTRICULAR TACHYCARDIA [None]
